FAERS Safety Report 8036539-X (Version None)
Quarter: 2012Q1

REPORT INFORMATION
  Report Type: 
  Country: None (occurrence: None)
  Receive Date: 20120111
  Receipt Date: 20120104
  Transmission Date: 20120608
  Serious: Yes (Hospitalization)
  Sender: FDA-Public Use
  Company Number: US-PFIZER INC-K200900305

PATIENT
  Age: 69 Year
  Sex: Female
  Weight: 62 kg

DRUGS (5)
  1. ACETYLSALICYLIC ACID [Concomitant]
     Indication: PERIPHERAL ARTERIAL OCCLUSIVE DISEASE
     Dosage: 100 MG, UNK
     Route: 048
  2. RAMIPRIL [Interacting]
     Indication: HYPERTENSION
     Dosage: 5 MG, 2X/DAY
     Route: 048
  3. DOXAZOSIN MESYLATE [Interacting]
     Indication: HYPERTENSION
     Dosage: 2 MG, 1X/DAY
     Route: 048
  4. AMLODIPINE/VALSARTAN [Interacting]
     Indication: HYPERTENSION
     Dosage: 10/160 MG, QD
     Route: 048
  5. METOPROLOL SUCCINATE [Suspect]
     Indication: HYPERTENSION
     Dosage: 95-0-47.5 MG BID
     Route: 048
     Dates: end: 20090101

REACTIONS (4)
  - HYPOTENSION [None]
  - DRUG INTERACTION [None]
  - SINUS BRADYCARDIA [None]
  - SYNCOPE [None]
